FAERS Safety Report 6536266-1 (Version None)
Quarter: 2010Q1

REPORT INFORMATION
  Report Type: 
  Country: None (occurrence: None)
  Receive Date: 20100113
  Receipt Date: 20091201
  Transmission Date: 20100710
  Serious: No
  Sender: FDA-Public Use
  Company Number: US-ALLERGAN-0915696US

PATIENT
  Age: 40 Year
  Sex: Female
  Weight: 78.005 kg

DRUGS (1)
  1. LATISSE [Suspect]
     Indication: DRUG USE FOR UNKNOWN INDICATION
     Dosage: UNK
     Route: 061
     Dates: start: 20091010, end: 20091101

REACTIONS (1)
  - EPHELIDES [None]
